FAERS Safety Report 20581454 (Version 1)
Quarter: 2022Q1

REPORT INFORMATION
  Report Type: Spontaneous
  Country: US (occurrence: US)
  Receive Date: 20220311
  Receipt Date: 20220311
  Transmission Date: 20220423
  Serious: No
  Sender: FDA-Public Use
  Company Number: US-CIPLA LTD.-2021US02002

PATIENT

DRUGS (2)
  1. SERTRALINE [Suspect]
     Active Substance: SERTRALINE HYDROCHLORIDE
     Indication: Depression
     Dosage: 100 MILLIGRAM, QD
     Route: 048
  2. SERTRALINE [Suspect]
     Active Substance: SERTRALINE HYDROCHLORIDE
     Dosage: 100 MILLIGRAM, QD
     Route: 048
     Dates: start: 20210304, end: 20210305

REACTIONS (4)
  - Eye swelling [Recovering/Resolving]
  - Swelling face [Recovering/Resolving]
  - Product quality issue [Unknown]
  - Urticaria [Recovering/Resolving]

NARRATIVE: CASE EVENT DATE: 20210304
